FAERS Safety Report 5129015-5 (Version None)
Quarter: 2006Q4

REPORT INFORMATION
  Report Type: 
  Country: None (occurrence: None)
  Receive Date: 20061017
  Receipt Date: 20061009
  Transmission Date: 20070319
  Serious: Yes (Hospitalization)
  Sender: FDA-Public Use
  Company Number: UA-BOEHRINGER INGELHEIM PHARMACEUTICALS, INC.-2006-AP-00398AP

PATIENT
  Age: 74 Year
  Sex: Female

DRUGS (3)
  1. MOVALIS [Suspect]
     Indication: OSTEOARTHRITIS
     Route: 048
     Dates: start: 20060101, end: 20060928
  2. NOVONORM [Concomitant]
     Indication: DIABETES MELLITUS
  3. SIOFOR 500 [Concomitant]
     Indication: DIABETES MELLITUS

REACTIONS (7)
  - ALANINE AMINOTRANSFERASE INCREASED [None]
  - ANOREXIA [None]
  - ASPARTATE AMINOTRANSFERASE INCREASED [None]
  - ASTHENIA [None]
  - DIZZINESS [None]
  - DYSPNOEA [None]
  - JAUNDICE [None]
